FAERS Safety Report 5294586-5 (Version None)
Quarter: 2007Q2

REPORT INFORMATION
  Report Type: 
  Country: None (occurrence: None)
  Receive Date: 20070412
  Receipt Date: 20070404
  Transmission Date: 20071010
  Serious: Yes (Life-Threatening, Other)
  Sender: FDA-Public Use
  Company Number: 2007AC00591

PATIENT
  Age: 65 Year
  Sex: Female
  Weight: 75 kg

DRUGS (10)
  1. PROPOFOL [Suspect]
     Indication: SEDATION
     Dosage: TITRATED DOSES AT 20 TO 40 MG INCREMENTS TO TOTAL OF 120 MG.
     Route: 042
  2. PROPOFOL [Suspect]
     Indication: ANALGESIC EFFECT
     Dosage: TITRATED DOSES AT 20 TO 40 MG INCREMENTS TO TOTAL OF 120 MG.
     Route: 042
  3. PROPOFOL [Suspect]
     Dosage: BOLUS
     Route: 042
  4. PROPOFOL [Suspect]
     Dosage: BOLUS
     Route: 042
  5. FENTANYL [Suspect]
     Indication: SEDATION
     Route: 042
  6. FENTANYL [Suspect]
     Indication: ANALGESIC EFFECT
     Route: 042
  7. FENTANYL [Suspect]
     Route: 042
  8. FENTANYL [Suspect]
     Route: 042
  9. CANDESARTAN [Concomitant]
     Indication: HYPERTENSION
  10. MORPHINE [Concomitant]
     Indication: ANALGESIC EFFECT
     Route: 042

REACTIONS (2)
  - PNEUMONIA ASPIRATION [None]
  - TACHYCARDIA [None]
